FAERS Safety Report 4783263-2 (Version None)
Quarter: 2005Q3

REPORT INFORMATION
  Report Type: 
  Country: None (occurrence: None)
  Receive Date: 20050929
  Receipt Date: 20050921
  Transmission Date: 20060218
  Serious: Yes (Other)
  Sender: FDA-Public Use
  Company Number: US-MERCK-0509USA03437

PATIENT
  Age: 46 Year
  Sex: Female
  Weight: 118 kg

DRUGS (10)
  1. VIOXX [Suspect]
     Indication: OSTEOPOROSIS
     Route: 048
  2. ALBUTEROL [Concomitant]
     Route: 065
  3. ATROVENT [Concomitant]
     Route: 065
  4. NITROGLYCERIN [Concomitant]
     Route: 061
  5. TYLENOL (CAPLET) [Concomitant]
     Route: 065
  6. LASIX [Concomitant]
     Route: 065
  7. REGLAN [Concomitant]
     Route: 065
  8. LESCOL [Concomitant]
     Route: 065
  9. DILTIAZEM HYDROCHLORIDE [Concomitant]
     Route: 065
  10. TAGAMET [Concomitant]
     Route: 065

REACTIONS (4)
  - ARRHYTHMIA [None]
  - MYOCARDIAL INFARCTION [None]
  - OVERDOSE [None]
  - PULMONARY EMBOLISM [None]
